FAERS Safety Report 4590201-4 (Version None)
Quarter: 2005Q1

REPORT INFORMATION
  Report Type: 
  Country: None (occurrence: None)
  Receive Date: 20050217
  Receipt Date: 20050207
  Transmission Date: 20050727
  Serious: Yes (Hospitalization)
  Sender: FDA-Public Use
  Company Number: 2005026542

PATIENT
  Age: 58 Year
  Sex: Female
  Weight: 92.9874 kg

DRUGS (27)
  1. DETROL LA [Suspect]
     Indication: HYPERTONIC BLADDER
     Dosage: 4 MG (4 MG, QD), ORAL
     Route: 048
     Dates: start: 20020101
  2. CELEBREX [Suspect]
     Indication: ILL-DEFINED DISORDER
     Dosage: ORAL
     Route: 048
     Dates: start: 20010101
  3. ZYRTEC [Suspect]
     Indication: ILL-DEFINED DISORDER
     Dosage: ORAL
     Route: 048
     Dates: start: 20010101
  4. OXYCODONE HCL [Suspect]
     Indication: PAIN
     Dates: start: 19990101
  5. DOCUSATE (DOCUSATE) [Concomitant]
     Indication: ILL-DEFINED DISORDER
     Dates: start: 20000101
  6. DIAZEPAM [Suspect]
     Indication: ILL-DEFINED DISORDER
     Dates: start: 19990101
  7. METOCLOPRAMIDE [Concomitant]
  8. FELODIPINE [Concomitant]
  9. DYAZIDE [Concomitant]
  10. DILTIAZEM HYDROCHLORIDE [Concomitant]
  11. GUAIFENESIN (GUAIFENESIN) [Concomitant]
  12. BRIMONIDINE TARTRATE (BRIMONIDINE TARTRATE) [Concomitant]
  13. BRINZOLAMIDE (BRINZOLAMIDE) [Concomitant]
  14. BUDESONIDE (BUDESONIDE) [Concomitant]
  15. FLUTICASONE PROPIONATE [Concomitant]
  16. SALBUTAMOL (SALBUTAMOL) [Concomitant]
  17. LIDOCAINE [Concomitant]
  18. TOCOPHEROL (TOCOPHEROL) [Concomitant]
  19. CENTRUM (MINERALS NOS, VITAMINS NOS) [Concomitant]
  20. METOPROLOL TARTRATE [Concomitant]
  21. VENLAFAXINE HCL [Concomitant]
  22. CONJUGATED ESTROGENS [Concomitant]
  23. LACTULOSE [Concomitant]
  24. ASPIRIN [Concomitant]
  25. ALL OTHER THERAPEUTIC PRODUCTS (ALL OTHER THERAPECUTIC PRODUCTS) [Concomitant]
  26. TRAZODONE (TRAZODONE) [Concomitant]
  27. ZOLPIDEM TARTRATE [Concomitant]

REACTIONS (5)
  - BLADDER DISORDER [None]
  - CONSTIPATION [None]
  - DIZZINESS [None]
  - DRY MOUTH [None]
  - URINARY INCONTINENCE [None]
